FAERS Safety Report 23538455 (Version 1)
Quarter: 2024Q1

REPORT INFORMATION
  Report Type: Spontaneous
  Country: JP (occurrence: JP)
  Receive Date: 20240219
  Receipt Date: 20240219
  Transmission Date: 20240410
  Serious: Yes (Other)
  Sender: FDA-Public Use
  Company Number: None

PATIENT
  Age: 3 Decade
  Sex: Female

DRUGS (4)
  1. QUETIAPINE FUMARATE [Suspect]
     Active Substance: QUETIAPINE FUMARATE
     Indication: Intentional self-injury
     Dosage: 225 MG, ONCE PER DAY
  2. VALPROIC ACID [Suspect]
     Active Substance: VALPROIC ACID
     Indication: Intentional self-injury
     Dosage: 1600 MG, ONCE PER DAY
  3. ETIZOLAM [Concomitant]
     Active Substance: ETIZOLAM
     Indication: Antipsychotic therapy
     Dosage: UNK,  UNK
  4. RISPERIDONE [Concomitant]
     Active Substance: RISPERIDONE
     Indication: Epilepsy
     Dosage: 2 MG, ONCE PER DAY

REACTIONS (1)
  - Central hypothyroidism [Recovered/Resolved]
